FAERS Safety Report 24162452 (Version 1)
Quarter: 2024Q3

REPORT INFORMATION
  Report Type: Spontaneous
  Country: US (occurrence: None)
  Receive Date: 20240731
  Receipt Date: 20240731
  Transmission Date: 20241016
  Serious: Yes (Other)
  Sender: Public
  Company Number: None

PATIENT
  Age: 61 Year
  Sex: Female

DRUGS (2)
  1. TAGRISSO [Suspect]
     Active Substance: OSIMERTINIB
     Dates: start: 20240202, end: 20240731
  2. GEFITINIB [Suspect]
     Active Substance: GEFITINIB

REACTIONS (2)
  - Diarrhoea [None]
  - Joint swelling [None]

NARRATIVE: CASE EVENT DATE: 20240731
